FAERS Safety Report 20577901 (Version 1)
Quarter: 2022Q1

REPORT INFORMATION
  Report Type: Spontaneous
  Country: IT (occurrence: IT)
  Receive Date: 20220310
  Receipt Date: 20220310
  Transmission Date: 20220423
  Serious: Yes (Other)
  Sender: FDA-Public Use
  Company Number: IT-JNJFOC-20220137931

PATIENT
  Age: 50 Year
  Sex: Male
  Weight: 80 kg

DRUGS (5)
  1. FLURBIPROFEN [Suspect]
     Active Substance: FLURBIPROFEN
     Indication: Product used for unknown indication
     Dosage: 6 LOZENGES LEMON AND HONEY TASTE OF FROBENACTIV 8.75 MG (FLURBIPROPHEN)
     Route: 048
     Dates: start: 20220115, end: 20220115
  2. LORMETAZEPAM [Suspect]
     Active Substance: LORMETAZEPAM
     Indication: Product used for unknown indication
     Dosage: 2 GTT OF LORMETAZEPAM ABC (ORAL DROPS 20 ML)
     Route: 048
     Dates: start: 20220115, end: 20220115
  3. ACTIFED (PSEUDOEPHEDRINE HYDROCHLORIDE\TRIPROLIDINE HYDROCHLORIDE) [Suspect]
     Active Substance: PSEUDOEPHEDRINE HYDROCHLORIDE\TRIPROLIDINE HYDROCHLORIDE
     Indication: Product used for unknown indication
     Dosage: 12 TABLETS OF ACTIFED 2.5 MG PLUS 60 MG
     Route: 048
     Dates: start: 20220115, end: 20220115
  4. ACETAMINOPHEN\PSEUDOEPHEDRINE HYDROCHLORIDE\TRIPROLIDINE HYDROCHLORIDE [Suspect]
     Active Substance: ACETAMINOPHEN\PSEUDOEPHEDRINE HYDROCHLORIDE\TRIPROLIDINE HYDROCHLORIDE
     Indication: Product used for unknown indication
     Dosage: 12 TABLETS
     Route: 048
     Dates: start: 20220115, end: 20220115
  5. TACHIPIRINA [Suspect]
     Active Substance: ACETAMINOPHEN
     Indication: Product used for unknown indication
     Dosage: 11 TABLETS OF TACHIPIRINA 1000 MG (ACETAMINOPHEN, 1000 MG, 12 EFFERVESCENT TABLETS)
     Route: 048
     Dates: start: 20220115, end: 20220115

REACTIONS (3)
  - Sopor [Unknown]
  - Intentional self-injury [Unknown]
  - Intentional overdose [Unknown]

NARRATIVE: CASE EVENT DATE: 20220115
